FAERS Safety Report 24886865 (Version 1)
Quarter: 2025Q1

REPORT INFORMATION
  Report Type: Spontaneous
  Country: NP (occurrence: NP)
  Receive Date: 20250126
  Receipt Date: 20250126
  Transmission Date: 20250408
  Serious: Yes (Other)
  Sender: STRIDES
  Company Number: NP-STRIDES ARCOLAB LIMITED-2025SP001177

PATIENT
  Age: 7 Decade
  Sex: Female

DRUGS (3)
  1. HYDROCODONE BITARTRATE AND ACETAMINOPHEN [Suspect]
     Active Substance: ACETAMINOPHEN\HYDROCODONE BITARTRATE
     Indication: Pain management
     Route: 042
  2. CYMBALTA [Concomitant]
     Active Substance: DULOXETINE HYDROCHLORIDE
     Indication: Pain management
     Route: 065
  3. GABAPENTIN [Concomitant]
     Active Substance: GABAPENTIN
     Indication: Pain management
     Route: 065

REACTIONS (3)
  - Pulmonary granuloma [Unknown]
  - Foreign body reaction [Unknown]
  - Wrong technique in product usage process [Unknown]

NARRATIVE: CASE EVENT DATE: 20230101
